FAERS Safety Report 24589321 (Version 1)
Quarter: 2024Q4

REPORT INFORMATION
  Report Type: Spontaneous
  Country: US (occurrence: US)
  Receive Date: 20241107
  Receipt Date: 20241107
  Transmission Date: 20250114
  Serious: No
  Sender: UROGEN PHARMA
  Company Number: US-UROGEN PHARMA LTD.-2024-UGN-000140

PATIENT

DRUGS (2)
  1. JELMYTO [Suspect]
     Active Substance: MITOMYCIN
     Indication: Product used for unknown indication
     Dosage: 10 MILLILITER, ONCE A WEEK (BILATERAL ANTEGRADE INSTILLATION IN EACH KIDNEY)
     Route: 065
     Dates: start: 20240829, end: 20240829
  2. JELMYTO [Suspect]
     Active Substance: MITOMYCIN
     Dosage: 10 MILLILITER, ONCE A WEEK (BILATERAL ANTEGRADE INSTILLATION IN EACH KIDNEY)
     Route: 065
     Dates: start: 20240905, end: 20240905

REACTIONS (1)
  - Rash [Recovering/Resolving]

NARRATIVE: CASE EVENT DATE: 20240901
